FAERS Safety Report 5519417-7 (Version None)
Quarter: 2007Q4

REPORT INFORMATION
  Report Type: 
  Country: None (occurrence: None)
  Receive Date: 20071116
  Receipt Date: 20071106
  Transmission Date: 20080405
  Serious: Yes (Hospitalization, Disabling, Other)
  Sender: FDA-Public Use
  Company Number: IE-AMGEN-UK252043

PATIENT
  Age: 71 Year
  Sex: Male

DRUGS (2)
  1. ARANESP [Suspect]
     Indication: RENAL FAILURE CHRONIC
     Route: 058
     Dates: start: 20070415, end: 20070831
  2. NEORECORMON [Suspect]
     Route: 065
     Dates: start: 20070831

REACTIONS (3)
  - ANAEMIA [None]
  - APLASIA PURE RED CELL [None]
  - HAEMOGLOBIN DECREASED [None]
